FAERS Safety Report 5661418-2 (Version None)
Quarter: 2008Q1

REPORT INFORMATION
  Report Type: 
  Country: None (occurrence: None)
  Receive Date: 20080311
  Receipt Date: 20080228
  Transmission Date: 20080703
  Serious: Yes (Other)
  Sender: FDA-Public Use
  Company Number: FR-PFIZER INC-2008019636

PATIENT
  Sex: Male

DRUGS (4)
  1. LYRICA [Suspect]
     Indication: NEURALGIA
  2. COVERSYL [Concomitant]
  3. CARDENSIEL [Concomitant]
  4. TERALITHE [Concomitant]

REACTIONS (1)
  - CARDIAC FLUTTER [None]
